FAERS Safety Report 7803106-X (Version None)
Quarter: 2011Q4

REPORT INFORMATION
  Report Type: 
  Country: None (occurrence: None)
  Receive Date: 20111007
  Receipt Date: 20110928
  Transmission Date: 20120403
  Serious: Yes (Other)
  Sender: FDA-Public Use
  Company Number: US-JNJFOC-20110912258

PATIENT
  Age: 22 Year

DRUGS (1)
  1. REMICADE [Suspect]
     Indication: INFLAMMATORY BOWEL DISEASE
     Dosage: PATIENT WAS ON REMICADE FOR ABOUT 5 YEARS
     Route: 042

REACTIONS (1)
  - GOUT [None]
